FAERS Safety Report 17550740 (Version 1)
Quarter: 2020Q1

REPORT INFORMATION
  Report Type: Spontaneous
  Country: US (occurrence: US)
  Receive Date: 20200317
  Receipt Date: 20200317
  Transmission Date: 20200409
  Serious: Yes (Hospitalization)
  Sender: FDA-Public Use
  Company Number: US-GLAXOSMITHKLINE-US2020043620

PATIENT
  Age: 39 Year
  Sex: Female

DRUGS (1)
  1. BENLYSTA [Suspect]
     Active Substance: BELIMUMAB
     Indication: SYSTEMIC LUPUS ERYTHEMATOSUS
     Dosage: 200 MG, WE
     Route: 058
     Dates: start: 2018

REACTIONS (12)
  - Abdominal pain lower [Unknown]
  - Vomiting [Unknown]
  - Post procedural infection [Unknown]
  - Bladder operation [Unknown]
  - Malaise [Unknown]
  - Product dose omission [Unknown]
  - Hospitalisation [Unknown]
  - Diarrhoea [Unknown]
  - Gastrointestinal inflammation [Unknown]
  - Vaginal operation [Unknown]
  - Spinal operation [Unknown]
  - Memory impairment [Unknown]

NARRATIVE: CASE EVENT DATE: 201807
